FAERS Safety Report 4618041-8 (Version None)
Quarter: 2005Q1

REPORT INFORMATION
  Report Type: 
  Country: None (occurrence: None)
  Receive Date: 20050322
  Receipt Date: 20050308
  Transmission Date: 20050727
  Serious: Yes (Death)
  Sender: FDA-Public Use
  Company Number: FABR-11050

PATIENT
  Age: 51 Year
  Sex: Male
  Weight: 45 kg

DRUGS (4)
  1. FABRAZYME [Suspect]
     Indication: FABRY'S DISEASE
     Dosage: 50 MG Q2WKS IV
     Route: 042
     Dates: start: 20040927, end: 20050130
  2. FOLIC ACID [Concomitant]
  3. CLOPIDOGREL [Concomitant]
  4. VITAMIN D [Concomitant]

REACTIONS (1)
  - CEREBROVASCULAR INSUFFICIENCY [None]
